FAERS Safety Report 20830032 (Version 1)
Quarter: 2022Q2

REPORT INFORMATION
  Report Type: Spontaneous
  Country: GB (occurrence: GB)
  Receive Date: 20220514
  Receipt Date: 20220514
  Transmission Date: 20220721
  Serious: Yes (Other)
  Sender: FDA-Public Use
  Company Number: GB-MHRA-MED-202205031630306110-HLESH

PATIENT
  Age: 23 Year
  Sex: Female
  Weight: 62 kg

DRUGS (3)
  1. ARIPIPRAZOLE [Suspect]
     Active Substance: ARIPIPRAZOLE
     Indication: Bipolar disorder
     Dosage: 5 MILLIGRAM DAILY; 5MG IN THE MORNING; DURATION 195DAYS
     Route: 065
     Dates: start: 20210901, end: 20220315
  2. MELATONIN [Concomitant]
     Active Substance: MELATONIN
     Indication: Adverse drug reaction
     Dates: start: 20211013
  3. LAMOTRIGINE [Concomitant]
     Active Substance: LAMOTRIGINE
     Indication: Bipolar disorder
     Dates: start: 20211215

REACTIONS (2)
  - Restless legs syndrome [Not Recovered/Not Resolved]
  - Akathisia [Not Recovered/Not Resolved]
